FAERS Safety Report 8270485-1 (Version None)
Quarter: 2012Q2

REPORT INFORMATION
  Report Type: 
  Country: None (occurrence: None)
  Receive Date: 20120410
  Receipt Date: 20120330
  Transmission Date: 20120825
  Serious: Yes (Other)
  Sender: FDA-Public Use
  Company Number: JP-CELGENEUS-087-21880-11043488

PATIENT
  Sex: Female

DRUGS (26)
  1. REVLIMID [Suspect]
     Dosage: 10 MILLIGRAM
     Route: 048
     Dates: start: 20110324, end: 20110413
  2. DEXAMETHASONE ACETATE [Suspect]
     Dosage: 40 MILLIGRAM
     Route: 048
     Dates: start: 20110112, end: 20110114
  3. ZOMETA [Concomitant]
     Dosage: 4 MILLIGRAM
     Route: 041
     Dates: start: 20101215, end: 20101215
  4. REVLIMID [Suspect]
     Dosage: 10 MILLIGRAM
     Route: 048
     Dates: start: 20110126, end: 20110216
  5. PURSENNID [Concomitant]
     Dosage: 12 MILLIGRAM
     Route: 048
     Dates: start: 20030328, end: 20101216
  6. COTRIM [Concomitant]
     Dosage: 1 TABLET
     Route: 048
     Dates: start: 20101215
  7. LOXONIN [Concomitant]
     Route: 061
     Dates: start: 20110112
  8. REVLIMID [Suspect]
     Dosage: 10 MILLIGRAM
     Route: 048
     Dates: start: 20101130, end: 20101220
  9. DEXAMETHASONE ACETATE [Suspect]
     Dosage: 40 MILLIGRAM
     Route: 048
     Dates: start: 20101130, end: 20101207
  10. DEXAMETHASONE ACETATE [Suspect]
     Dosage: 40 MILLIGRAM
     Route: 048
     Dates: start: 20110202, end: 20110204
  11. FAMOTIDINE [Concomitant]
     Indication: PROPHYLAXIS
     Dosage: 20 MILLIGRAM
     Route: 048
     Dates: start: 20070618
  12. DEXAMETHASONE ACETATE [Suspect]
     Dosage: 40 MILLIGRAM
     Route: 048
     Dates: start: 20101222, end: 20101225
  13. DEXAMETHASONE ACETATE [Suspect]
     Dosage: 40 MILLIGRAM
     Route: 048
     Dates: start: 20110307, end: 20110309
  14. ASPIRIN [Suspect]
     Indication: PROPHYLAXIS
     Dosage: 100 MILLIGRAM
     Route: 048
     Dates: start: 20101115
  15. LENDORMIN D [Concomitant]
     Dosage: .25 MILLIGRAM
     Route: 048
     Dates: start: 20030117
  16. KETOPROFEN [Concomitant]
     Route: 061
     Dates: start: 20101115
  17. MOHRUS TAPE [Concomitant]
     Route: 061
     Dates: start: 20101116, end: 20110111
  18. REVLIMID [Suspect]
     Indication: MYELOMA RECURRENCE
     Dosage: 25 MILLIGRAM
     Route: 048
     Dates: start: 20101115, end: 20101123
  19. DEXAMETHASONE ACETATE [Suspect]
     Dosage: 40 MILLIGRAM
     Route: 048
     Dates: start: 20110330, end: 20110401
  20. MAGNESIUM SULFATE [Concomitant]
     Dosage: 990 MILLIGRAM
     Route: 048
     Dates: start: 20021215
  21. REVLIMID [Suspect]
     Dosage: 10 MILLIGRAM
     Route: 048
     Dates: start: 20110223, end: 20110315
  22. DEXAMETHASONE ACETATE [Suspect]
     Indication: MYELOMA RECURRENCE
     Dosage: 40 MILLIGRAM
     Route: 048
     Dates: start: 20101115, end: 20101115
  23. DEXAMETHASONE ACETATE [Suspect]
     Dosage: 40 MILLIGRAM
     Route: 048
     Dates: start: 20110223, end: 20110224
  24. RISEDRONATE SODIUM [Concomitant]
     Dosage: 17.5 MILLIGRAM
     Route: 048
     Dates: start: 20101215
  25. REVLIMID [Suspect]
     Dosage: 10 MILLIGRAM
     Route: 048
     Dates: start: 20101229, end: 20110125
  26. MS REISHIPPU [Concomitant]
     Route: 061
     Dates: start: 20101113, end: 20101206

REACTIONS (10)
  - GASTROINTESTINAL CANDIDIASIS [None]
  - BONE PAIN [None]
  - PYREXIA [None]
  - LIVER DISORDER [None]
  - PLATELET COUNT DECREASED [None]
  - ANAEMIA [None]
  - FACE OEDEMA [None]
  - URINARY TRACT INFECTION [None]
  - LYMPHOCYTE COUNT DECREASED [None]
  - PAIN IN EXTREMITY [None]
